FAERS Safety Report 12266611 (Version 3)
Quarter: 2016Q2

REPORT INFORMATION
  Report Type: Spontaneous
  Country: AU (occurrence: AU)
  Receive Date: 20160414
  Receipt Date: 20160617
  Transmission Date: 20160815
  Serious: Yes (Hospitalization, Other)
  Sender: FDA-Public Use
  Company Number: AU-009507513-1604AUS005519

PATIENT
  Age: 47 Year
  Sex: Female

DRUGS (5)
  1. ESTRIOL [Suspect]
     Active Substance: ESTRIOL
     Indication: VULVAL DISORDER
     Dosage: 1 APPLICATION PER NIGHT (1 IN 1D)
     Route: 065
     Dates: start: 20160304, end: 20160307
  2. GABAPENTIN. [Concomitant]
     Active Substance: GABAPENTIN
     Indication: VULVAL DISORDER
     Dosage: DOSE 300 MG , (2 IN 1D), BID
     Route: 048
     Dates: start: 20151215, end: 20160322
  3. BEROCCA [Concomitant]
     Active Substance: VITAMINS
     Indication: ROUTINE HEALTH MAINTENANCE
     Dosage: DOSE AND FREQUENCY UNKNOWN, HAS BEEN TAKING FOR MANY YEARS
     Route: 048
  4. WAGNER TOTAL CALCIUM COMPLETE [Concomitant]
     Indication: BONE DENSITY ABNORMAL
     Dosage: CALCIUM 250MG, COMBINATION WITH VITAMIN D 250 IU, (2 IN 1 D) BID
     Route: 048
  5. OMEGA-3 MARINE TRIGLYCERIDES [Concomitant]
     Active Substance: FISH OIL
     Indication: ARTHRITIS
     Dosage: HAS BEEN TAKING FOR MANY YEARS, 1 AS REQUIRED (PRN)
     Route: 048

REACTIONS (3)
  - Kidney infection [Recovering/Resolving]
  - Application site pain [Recovering/Resolving]
  - Application site odour [Recovering/Resolving]

NARRATIVE: CASE EVENT DATE: 2016
